FAERS Safety Report 8007101-X (Version None)
Quarter: 2011Q4

REPORT INFORMATION
  Report Type: 
  Country: None (occurrence: None)
  Receive Date: 20111227
  Receipt Date: 20111220
  Transmission Date: 20120403
  Serious: Yes (Other)
  Sender: FDA-Public Use
  Company Number: BR-PFIZER INC-2011309645

PATIENT
  Age: 45 Year
  Sex: Female
  Weight: 94 kg

DRUGS (1)
  1. LYRICA [Suspect]
     Indication: FIBROMYALGIA
     Dosage: UNK
     Route: 048

REACTIONS (5)
  - VOMITING [None]
  - PRESYNCOPE [None]
  - HEART RATE INCREASED [None]
  - HEADACHE [None]
  - FEELING ABNORMAL [None]
